FAERS Safety Report 23866282 (Version 1)
Quarter: 2024Q2

REPORT INFORMATION
  Report Type: Report from Study
  Country: CA (occurrence: CA)
  Receive Date: 20240517
  Receipt Date: 20240517
  Transmission Date: 20240715
  Serious: Yes (Other)
  Sender: FDA-Public Use
  Company Number: CA-002147023-NVSC2024CA015853

PATIENT
  Age: 54 Year
  Sex: Female

DRUGS (3)
  1. COSENTYX [Suspect]
     Active Substance: SECUKINUMAB
     Indication: Ankylosing spondylitis
     Dosage: 150 MG, QW (WEEKS 0, 1, 2, 3, AND 4)
     Route: 058
     Dates: start: 20240120
  2. COSENTYX [Suspect]
     Active Substance: SECUKINUMAB
     Dosage: 150 MG, QMO
     Route: 058
  3. COSENTYX [Suspect]
     Active Substance: SECUKINUMAB
     Dosage: 150 MG, QMO
     Route: 058
     Dates: start: 20240120

REACTIONS (17)
  - Laryngeal oedema [Unknown]
  - Hypotension [Unknown]
  - Fatigue [Unknown]
  - Abdominal pain [Unknown]
  - Abdominal distension [Unknown]
  - Inflammation [Unknown]
  - Ear discomfort [Unknown]
  - Tonsillar ulcer [Unknown]
  - Vocal cord erythema [Unknown]
  - Pharyngeal inflammation [Unknown]
  - Ear inflammation [Unknown]
  - Aphonia [Recovered/Resolved]
  - Malaise [Recovering/Resolving]
  - Viral pharyngitis [Not Recovered/Not Resolved]
  - Oropharyngeal pain [Not Recovered/Not Resolved]
  - Illness [Unknown]
  - Feeling abnormal [Unknown]
